FAERS Safety Report 7530634-7 (Version None)
Quarter: 2011Q2

REPORT INFORMATION
  Report Type: 
  Country: None (occurrence: None)
  Receive Date: 20110607
  Receipt Date: 20110517
  Transmission Date: 20111010
  Serious: Yes (Hospitalization, Other)
  Sender: FDA-Public Use
  Company Number: US-BAYER-201041495NA

PATIENT
  Age: 51 Year
  Sex: Female
  Weight: 113.38 kg

DRUGS (13)
  1. ULTRAM [Concomitant]
  2. LORTAB [Concomitant]
     Dosage: UNK UNK, PRN
  3. SOMA [Concomitant]
  4. YASMIN [Suspect]
     Indication: PREMENSTRUAL SYNDROME
  5. BEXTRA [Concomitant]
  6. VALTREX [Concomitant]
     Dosage: 400 MG, UNK
     Route: 048
  7. KLONOPIN [Concomitant]
     Dosage: 1 MG, UNK
     Route: 048
  8. SERZONE [Concomitant]
     Dosage: 300 MG, UNK
     Route: 048
  9. DARVOCET-N 50 [Concomitant]
  10. MAXZIDE [Concomitant]
  11. KEFLEX [Concomitant]
     Dosage: UNK UNK, QID
     Route: 048
  12. WELLBUTRIN SR [Concomitant]
     Dosage: 150 MG, UNK
     Route: 048
  13. YASMIN [Suspect]
     Indication: ACNE
     Dosage: UNK UNK, QD
     Route: 048
     Dates: start: 20020101, end: 20030101

REACTIONS (2)
  - INJURY [None]
  - DEEP VEIN THROMBOSIS [None]
